FAERS Safety Report 7578287-6 (Version None)
Quarter: 2011Q2

REPORT INFORMATION
  Report Type: 
  Country: None (occurrence: None)
  Receive Date: 20110628
  Receipt Date: 20110617
  Transmission Date: 20111010
  Serious: Yes (Disabling)
  Sender: FDA-Public Use
  Company Number: JP-ELI_LILLY_AND_COMPANY-JP201106005288

PATIENT
  Age: 65 Year

DRUGS (1)
  1. ALIMTA [Suspect]
     Route: 042

REACTIONS (1)
  - BLOOD ALKALINE PHOSPHATASE INCREASED [None]
